FAERS Safety Report 6460949-5 (Version None)
Quarter: 2009Q4

REPORT INFORMATION
  Report Type: 
  Country: None (occurrence: None)
  Receive Date: 20091120
  Receipt Date: 20091109
  Transmission Date: 20100525
  Serious: Yes (Hospitalization)
  Sender: FDA-Public Use
  Company Number: 2009AL007128

PATIENT
  Age: 50 Year
  Sex: Female

DRUGS (5)
  1. IBUPROFEN ORAL SUSPENSION USP [Suspect]
     Indication: SINUSITIS
  2. ALBUTEROL SULFATE AUTOHALER [Concomitant]
  3. FLUTICASONE [Concomitant]
  4. METAMIZOLE [Concomitant]
  5. CLAVULANIC AMOXICILLIN [Concomitant]

REACTIONS (12)
  - ANAPHYLACTIC SHOCK [None]
  - BRADYCARDIA [None]
  - DIZZINESS [None]
  - DRUG INTOLERANCE [None]
  - DYSPNOEA [None]
  - ELECTROCARDIOGRAM ST SEGMENT DEPRESSION [None]
  - ELECTROCARDIOGRAM ST SEGMENT ELEVATION [None]
  - KOUNIS SYNDROME [None]
  - MYOCARDIAL INFARCTION [None]
  - PALPITATIONS [None]
  - TRYPTASE INCREASED [None]
  - VENTRICULAR TACHYCARDIA [None]
